FAERS Safety Report 10619946 (Version 2)
Quarter: 2014Q4

REPORT INFORMATION
  Report Type: Spontaneous
  Country: JP (occurrence: JP)
  Receive Date: 20141202
  Receipt Date: 20141202
  Transmission Date: 20150529
  Serious: Yes (Death, Other)
  Sender: FDA-Public Use
  Company Number: JP-PFIZER INC-2014289643

PATIENT
  Age: 1 Month
  Sex: Male
  Weight: .66 kg

DRUGS (2)
  1. PRODIF [Concomitant]
     Active Substance: FOSFLUCONAZOLE
     Indication: ANTIFUNGAL TREATMENT
     Dosage: 3 MG, 1X/DAY
     Route: 041
     Dates: start: 20120526
  2. ZYVOX [Suspect]
     Active Substance: LINEZOLID
     Indication: PNEUMONIA STAPHYLOCOCCAL
     Dosage: 6 MG, 3X/DAY
     Dates: start: 20120601, end: 20120605

REACTIONS (1)
  - Lactic acidosis [Fatal]

NARRATIVE: CASE EVENT DATE: 20120604
